FAERS Safety Report 5089896-0 (Version None)
Quarter: 2006Q3

REPORT INFORMATION
  Report Type: 
  Country: None (occurrence: None)
  Receive Date: 20060727
  Receipt Date: 20060524
  Transmission Date: 20061208
  Serious: Yes (Other)
  Sender: FDA-Public Use
  Company Number: 2006069345

PATIENT
  Age: 49 Year
  Sex: Female
  Weight: 71.2147 kg

DRUGS (3)
  1. LYRICA [Suspect]
     Indication: MIGRAINE
     Dosage: 100 MG (50 MG, UNKNOWN)
     Route: 065
     Dates: start: 20060503
  2. METHADONE HCL [Suspect]
     Indication: ILL-DEFINED DISORDER
     Dosage: UNKNOWN DAILY
     Route: 065
     Dates: start: 20060503
  3. SYNTHROID [Concomitant]

REACTIONS (4)
  - DRUG INTERACTION [None]
  - HALLUCINATION [None]
  - MENSTRUAL DISORDER [None]
  - OLIGOMENORRHOEA [None]
